FAERS Safety Report 4967103-4 (Version None)
Quarter: 2006Q2

REPORT INFORMATION
  Report Type: 
  Country: None (occurrence: None)
  Receive Date: 20060403
  Receipt Date: 20060110
  Transmission Date: 20061013
  Serious: Yes (Hospitalization)
  Sender: FDA-Public Use
  Company Number: 2006-01-0529

PATIENT
  Age: 62 Year
  Sex: Male
  Weight: 104 kg

DRUGS (16)
  1. DACARBAZINE [Suspect]
     Indication: METASTATIC MALIGNANT MELANOMA
     Dosage: 2150-2240 MG INTRAVENOUS
     Route: 042
     Dates: start: 20050809, end: 20051122
  2. DECADRON [Concomitant]
  3. SENOKOT-S TABLETS [Concomitant]
  4. ALLEGRA [Concomitant]
  5. COENZYME Q10 CAPSULES [Concomitant]
  6. INOSITOL CAPSULES [Concomitant]
  7. METFORMIN [Concomitant]
  8. COLACE [Concomitant]
  9. ATENOLOL [Concomitant]
  10. GRAPE SEED EXTRACT CAPSULES [Concomitant]
  11. OXYCONTIN [Concomitant]
  12. SERRAPEPTASE TABLETS [Concomitant]
  13. OXYCODONE TABLETS [Concomitant]
  14. FLOMAX [Concomitant]
  15. EFFEXOR XR [Concomitant]
  16. COMPAZINE [Concomitant]

REACTIONS (3)
  - DEHYDRATION [None]
  - MENTAL STATUS CHANGES [None]
  - SINUSITIS [None]
